FAERS Safety Report 8857957 (Version 1)
Quarter: 2012Q4

REPORT INFORMATION
  Report Type: 
  Country: US (occurrence: US)
  Receive Date: 20121024
  Receipt Date: 20121024
  Transmission Date: 20130627
  Serious: No
  Sender: FDA-Public Use
  Company Number: US-AMGEN-USASP2012003897

PATIENT
  Age: 37 Year
  Sex: Female
  Weight: 39.91 kg

DRUGS (6)
  1. ENBREL [Suspect]
     Indication: PRODUCT USED FOR UNKNOWN INDICATION
     Dosage: 50 mg, qwk
  2. ENBREL [Suspect]
     Dosage: 25 mg, UNK
  3. TEGRETOL [Concomitant]
     Dosage: 200 mg, UNK
  4. RELAFEN [Concomitant]
     Dosage: 500 mg, UNK
  5. MULTIVITAMIN                       /00097801/ [Concomitant]
     Dosage: UNK
  6. FOLIC ACID [Concomitant]
     Dosage: UNK

REACTIONS (1)
  - Localised infection [Unknown]
